FAERS Safety Report 19066566 (Version 1)
Quarter: 2021Q1

REPORT INFORMATION
  Report Type: Spontaneous
  Country: CA (occurrence: CA)
  Receive Date: 20210328
  Receipt Date: 20210328
  Transmission Date: 20210420
  Serious: Yes (Hospitalization)
  Sender: FDA-Public Use
  Company Number: CA-TEVA-2021-CA-1893726

PATIENT
  Age: 58 Year
  Sex: Female

DRUGS (12)
  1. FILGRASTIM [Concomitant]
     Active Substance: FILGRASTIM
     Indication: MYELOSUPPRESSION
     Route: 065
  2. IMMUNOGLOBULIN G [Concomitant]
     Active Substance: HUMAN IMMUNOGLOBULIN G
     Indication: HYPOGAMMAGLOBULINAEMIA
     Route: 042
  3. RITUXIMAB. [Suspect]
     Active Substance: RITUXIMAB
     Indication: CHRONIC LYMPHOCYTIC LEUKAEMIA
     Route: 065
     Dates: start: 201711
  4. CIDOFOVIR. [Suspect]
     Active Substance: CIDOFOVIR
     Indication: ADENOVIRUS INFECTION
  5. PROBENECID. [Concomitant]
     Active Substance: PROBENECID
     Indication: PROPHYLAXIS
     Dosage: 2G BEFORE AND AFTER CIDOFOVIR INFUSION
     Route: 048
  6. CIDOFOVIR. [Suspect]
     Active Substance: CIDOFOVIR
     Indication: POLYOMAVIRUS VIRAEMIA
  7. CYCLOPHOSPHAMIDE. [Suspect]
     Active Substance: CYCLOPHOSPHAMIDE
     Indication: CHRONIC LYMPHOCYTIC LEUKAEMIA
     Route: 065
     Dates: start: 201711
  8. FLUDARABINE [Suspect]
     Active Substance: FLUDARABINE PHOSPHATE
     Indication: CHRONIC LYMPHOCYTIC LEUKAEMIA
     Route: 065
     Dates: start: 201711
  9. NORMAL SALINE [Concomitant]
     Active Substance: SODIUM CHLORIDE
     Indication: PROPHYLAXIS
     Dosage: 1 LT
     Route: 065
  10. VALACICLOVIR [Concomitant]
     Active Substance: VALACYCLOVIR HYDROCHLORIDE
     Indication: ANTIVIRAL PROPHYLAXIS
     Dosage: 1000 MILLIGRAM DAILY;
     Route: 048
  11. CIDOFOVIR. [Suspect]
     Active Substance: CIDOFOVIR
     Indication: CYTOMEGALOVIRUS INFECTION
     Dosage: 1 MG/KG THREE TIMES A WEEK
     Route: 041
     Dates: start: 20200101, end: 2020
  12. SEPTRA DS [Concomitant]
     Active Substance: SULFAMETHOXAZOLE\TRIMETHOPRIM
     Indication: ANTIFUNGAL PROPHYLAXIS
     Dosage: ON MONDAY, TUESDAY AND WEDNESDAY EVERY WEEK

REACTIONS (9)
  - Polyomavirus viraemia [Unknown]
  - Cytomegalovirus infection [Recovered/Resolved]
  - Hydronephrosis [Recovering/Resolving]
  - Myelosuppression [Recovered/Resolved]
  - Adenovirus infection [Unknown]
  - Cystitis haemorrhagic [Recovered/Resolved]
  - Acute kidney injury [Unknown]
  - Pancytopenia [Recovered/Resolved]
  - Hypogammaglobulinaemia [Unknown]

NARRATIVE: CASE EVENT DATE: 2019
